FAERS Safety Report 9963284 (Version 1)
Quarter: 2014Q1

REPORT INFORMATION
  Report Type: Report from Study
  Country: US (occurrence: US)
  Receive Date: 20140305
  Receipt Date: 20140305
  Transmission Date: 20141002
  Serious: No
  Sender: FDA-Public Use
  Company Number: US-ABBVIE-13P-163-1119513-00

PATIENT
  Sex: Female

DRUGS (2)
  1. HUMIRA [Suspect]
     Indication: ARTHRITIS REACTIVE
  2. PLAQUENIL [Concomitant]
     Indication: ARTHRITIS
     Dosage: 400MG PER DAY

REACTIONS (4)
  - Chest discomfort [Unknown]
  - Pain [Not Recovered/Not Resolved]
  - Pain [Unknown]
  - Fatigue [Unknown]
